FAERS Safety Report 9435264 (Version 1)
Quarter: 2013Q3

REPORT INFORMATION
  Report Type: Spontaneous
  Country: US (occurrence: US)
  Receive Date: 20130801
  Receipt Date: 20130801
  Transmission Date: 20140515
  Serious: Yes (Other)
  Sender: FDA-Public Use
  Company Number: US-RB-051370-13

PATIENT
  Age: 46 Year
  Sex: Female

DRUGS (6)
  1. MUCINEX FAST MAX CAPLETS SEVERE CONGESTION + COLD (ACETAMINOPHEN) [Suspect]
     Indication: SINUSITIS
     Dosage: TOOK FIRST DOSE AT 2 O^CLOCK IN ATERNOON AND SECOND AT 6 PM
     Route: 048
     Dates: start: 20121215
  2. MUCINEX FAST MAX CAPLETS SEVERE CONGESTION + COLD (ACETAMINOPHEN) [Suspect]
     Indication: SINUSITIS
     Dosage: TOOK FIRST DOSE AT 2 O^CLOCK IN ATERNOON AND SECOND AT 6 PM
     Route: 048
     Dates: start: 20121215
  3. MUCINEX FAST-MAX SEVERE CONGESTION AND COLD [Suspect]
  4. MUCINEX FAST MAX CAPLETS SEVERE CONGESTION + COLD [Suspect]
  5. MUCINEX FAST MAX CAPLETS SEVERE CONGESTION + COLD [Suspect]
  6. SYNTHROID [Concomitant]
     Indication: PRODUCT USED FOR UNKNOWN INDICATION

REACTIONS (16)
  - Hypersensitivity [Recovering/Resolving]
  - Anxiety [Recovering/Resolving]
  - Dizziness [Recovering/Resolving]
  - Confusional state [Recovering/Resolving]
  - Panic disorder [Recovering/Resolving]
  - Dyspnoea [Recovering/Resolving]
  - Palpitations [Recovering/Resolving]
  - Tremor [Recovering/Resolving]
  - Peripheral coldness [Recovering/Resolving]
  - Peripheral coldness [Recovering/Resolving]
  - Malaise [Recovering/Resolving]
  - Fear [Recovering/Resolving]
  - Vomiting [Recovering/Resolving]
  - Nausea [Recovering/Resolving]
  - Dizziness [Recovering/Resolving]
  - Off label use [Recovering/Resolving]
